FAERS Safety Report 7906680-8 (Version None)
Quarter: 2011Q4

REPORT INFORMATION
  Report Type: 
  Country: None (occurrence: None)
  Receive Date: 20111109
  Receipt Date: 20111109
  Transmission Date: 20120403
  Serious: Yes (Other)
  Sender: FDA-Public Use
  Company Number: None

PATIENT
  Age: 59 Year
  Sex: Female
  Weight: 77.1115 kg

DRUGS (1)
  1. NISOLDIPINE [Suspect]
     Indication: HYPERTENSION
     Dosage: 34 MG 1 DAILY ORAL  APPROXIMATELY 3-4 WEEKS
     Route: 048

REACTIONS (10)
  - FATIGUE [None]
  - VISION BLURRED [None]
  - CHEST DISCOMFORT [None]
  - HEADACHE [None]
  - DIZZINESS [None]
  - BLOOD PRESSURE FLUCTUATION [None]
  - HEART RATE INCREASED [None]
  - DYSPEPSIA [None]
  - DYSPNOEA [None]
  - PRURITUS [None]
